FAERS Safety Report 11345440 (Version 6)
Quarter: 2016Q4

REPORT INFORMATION
  Report Type: Report from Study
  Country: AT (occurrence: AT)
  Receive Date: 20150806
  Receipt Date: 20161108
  Transmission Date: 20170206
  Serious: Yes (Other)
  Sender: FDA-Public Use
  Company Number: AT-INCYTE CORPORATION-2015IN003780

PATIENT
  Age: 48 Year
  Sex: Male

DRUGS (43)
  1. JAKAVI [Suspect]
     Active Substance: RUXOLITINIB
     Indication: ESSENTIAL THROMBOCYTHAEMIA
  2. JAKAVI [Suspect]
     Active Substance: RUXOLITINIB
     Indication: MYELOFIBROSIS
  3. ANAGRELIDE [Concomitant]
     Active Substance: ANAGRELIDE
     Route: 065
  4. ANAGRELIDE [Concomitant]
     Active Substance: ANAGRELIDE
     Route: 065
  5. UDCA [Concomitant]
     Active Substance: URSODIOL
  6. HEPARIN [Concomitant]
     Active Substance: HEPARIN SODIUM
     Indication: PRODUCT USED FOR UNKNOWN INDICATION
     Dosage: UNK G/L, UNK
     Route: 065
  7. MYCAMINE [Concomitant]
     Active Substance: MICAFUNGIN SODIUM
     Indication: NEUTROPENIA
     Dosage: 50 MG, QD
     Route: 065
  8. CYCLOSPORIN [Concomitant]
     Active Substance: CYCLOSPORINE
     Indication: PROPHYLAXIS
     Dosage: 5 MG/KG, BID
     Route: 051
  9. UDCA [Concomitant]
     Active Substance: URSODIOL
  10. UDCA [Concomitant]
     Active Substance: URSODIOL
  11. MTX [Concomitant]
     Active Substance: METHOTREXATE SODIUM
  12. TAZONAM [Concomitant]
     Active Substance: TAZOBACTAM
     Indication: PRODUCT USED FOR UNKNOWN INDICATION
     Route: 065
  13. ANAGRELIDE [Concomitant]
     Active Substance: ANAGRELIDE
     Route: 065
  14. ANAGRELIDE [Concomitant]
     Active Substance: ANAGRELIDE
     Route: 065
  15. UDCA [Concomitant]
     Active Substance: URSODIOL
     Indication: PRODUCT USED FOR UNKNOWN INDICATION
     Dosage: 12 MG/KG, UNK
     Route: 065
  16. UDCA [Concomitant]
     Active Substance: URSODIOL
  17. MTX [Concomitant]
     Active Substance: METHOTREXATE SODIUM
  18. HEPARIN [Concomitant]
     Active Substance: HEPARIN SODIUM
     Dosage: UNK G/L, UNK
     Route: 065
  19. MTX [Concomitant]
     Active Substance: METHOTREXATE SODIUM
  20. LEUCOVORIN. [Concomitant]
     Active Substance: LEUCOVORIN
     Indication: PROPHYLAXIS
     Route: 065
  21. JAKAVI [Suspect]
     Active Substance: RUXOLITINIB
     Indication: MYELOFIBROSIS
     Dosage: 30 MG, UNK
     Route: 048
     Dates: start: 20131114, end: 201409
  22. HEPARIN [Concomitant]
     Active Substance: HEPARIN SODIUM
     Dosage: UNK G/L, UNK
     Route: 065
  23. HEPARIN [Concomitant]
     Active Substance: HEPARIN SODIUM
     Dosage: UNK G/L, UNK
     Route: 065
  24. TAVANIC [Concomitant]
     Active Substance: LEVOFLOXACIN
     Indication: INFECTION PROPHYLAXIS
     Dosage: 500 MG, BID
     Route: 048
  25. COTRIMOXAZOLE [Concomitant]
     Active Substance: SULFAMETHOXAZOLE\TRIMETHOPRIM
     Indication: INFECTION PROPHYLAXIS
     Dosage: UNK, BID
     Route: 048
  26. ZOVIRAX [Concomitant]
     Active Substance: ACYCLOVIR
     Indication: INFECTION PROPHYLAXIS
     Dosage: 800 MG, BID
     Route: 048
  27. MTX [Concomitant]
     Active Substance: METHOTREXATE SODIUM
     Indication: PROPHYLAXIS
     Dosage: 10 MG/M2, UNK
     Route: 065
  28. AVELOX//LEVOFLOXACIN [Concomitant]
     Active Substance: LEVOFLOXACIN
     Indication: PRODUCT USED FOR UNKNOWN INDICATION
     Route: 065
  29. MAXIPIME [Concomitant]
     Active Substance: CEFEPIME HYDROCHLORIDE
     Indication: PRODUCT USED FOR UNKNOWN INDICATION
     Dosage: 2 G, TID
     Route: 065
  30. ANAGRELIDE [Concomitant]
     Active Substance: ANAGRELIDE
     Route: 065
  31. EPILAN [Concomitant]
     Indication: PRODUCT USED FOR UNKNOWN INDICATION
     Dosage: 2 X 100 MG/DAY
  32. MTX [Concomitant]
     Active Substance: METHOTREXATE SODIUM
  33. AMBISOME [Concomitant]
     Active Substance: AMPHOTERICIN B
     Indication: PRODUCT USED FOR UNKNOWN INDICATION
     Dosage: UNK
     Route: 065
  34. FLUDARABINE [Concomitant]
     Active Substance: FLUDARABINE PHOSPHATE
     Indication: PRODUCT USED FOR UNKNOWN INDICATION
     Dosage: 30 MG/M2, UNK
     Route: 065
     Dates: start: 20140921, end: 20140926
  35. BUSILVEX [Concomitant]
     Active Substance: BUSULFAN
     Indication: PRODUCT USED FOR UNKNOWN INDICATION
     Dosage: 8 MG/KG, UNK
     Route: 065
     Dates: start: 20140927, end: 20140929
  36. HEPARIN [Concomitant]
     Active Substance: HEPARIN SODIUM
     Dosage: UNK G/L, UNK
     Route: 065
  37. PLATELETS [Concomitant]
     Active Substance: HUMAN PLATELET, ALLOGENIC
     Indication: PRODUCT USED FOR UNKNOWN INDICATION
     Dosage: 50 G/L, UNK
     Route: 048
  38. MTX [Concomitant]
     Active Substance: METHOTREXATE SODIUM
  39. ANAGRELIDE [Concomitant]
     Active Substance: ANAGRELIDE
     Indication: PRODUCT USED FOR UNKNOWN INDICATION
     Dosage: UNK
     Route: 065
  40. ANAGRELIDE [Concomitant]
     Active Substance: ANAGRELIDE
     Route: 065
  41. UDCA [Concomitant]
     Active Substance: URSODIOL
  42. HEPARIN [Concomitant]
     Active Substance: HEPARIN SODIUM
     Dosage: UNK G/L, UNK
     Route: 065
  43. HEPARIN [Concomitant]
     Active Substance: HEPARIN SODIUM
     Dosage: UNK G/L, UNK
     Route: 065

REACTIONS (31)
  - Tricuspid valve incompetence [Unknown]
  - Apoptosis [Unknown]
  - Disseminated intravascular coagulation [Unknown]
  - Gout [Unknown]
  - Pleural effusion [Unknown]
  - Nasal septum deviation [Unknown]
  - Granuloma [Unknown]
  - Fungal infection [Unknown]
  - Breath sounds abnormal [Unknown]
  - Roseolovirus test positive [Unknown]
  - Splenomegaly [Unknown]
  - Hyperbilirubinaemia [Unknown]
  - Lymphocytic infiltration [Unknown]
  - Mucosal inflammation [Unknown]
  - Pyrexia [Unknown]
  - Central venous pressure increased [Unknown]
  - Lung infiltration [Unknown]
  - Erythema [Unknown]
  - Thrombocytopenia [Unknown]
  - Acute graft versus host disease [Recovered/Resolved]
  - Dermatitis [Unknown]
  - Swelling [Unknown]
  - C-reactive protein increased [Unknown]
  - Hypoventilation [Unknown]
  - Intervertebral disc degeneration [Unknown]
  - Mitral valve incompetence [Unknown]
  - Haemorrhage [Unknown]
  - Lymphadenopathy [Unknown]
  - Jaundice [Unknown]
  - Blood bilirubin increased [Unknown]
  - Rash maculo-papular [Unknown]

NARRATIVE: CASE EVENT DATE: 201405
